FAERS Safety Report 4523342-8 (Version None)
Quarter: 2004Q4

REPORT INFORMATION
  Report Type: 
  Country: None (occurrence: None)
  Receive Date: 20041210
  Receipt Date: 20041201
  Transmission Date: 20050328
  Serious: Yes (Hospitalization)
  Sender: FDA-Public Use
  Company Number: PHBS2004US16402

PATIENT
  Age: 43 Year
  Sex: Male

DRUGS (4)
  1. CARBAMAZEPINE [Suspect]
     Indication: COMPLEX PARTIAL SEIZURES
     Dosage: 1200 MG/DAY
     Route: 065
  2. CARBAMAZEPINE [Suspect]
     Dosage: 600 MG/DAY
     Route: 065
  3. CARBAMAZEPINE [Suspect]
     Dosage: 1200 MG/DAY
     Route: 065
  4. LEVETIRACETAM [Concomitant]
     Indication: COMPLEX PARTIAL SEIZURES
     Dosage: 2000 MG/DAY
     Route: 065

REACTIONS (10)
  - APHASIA [None]
  - BLOOD PRESSURE INCREASED [None]
  - BRAIN LOBECTOMY [None]
  - CARDIAC ARREST [None]
  - CARDIAC PACEMAKER INSERTION [None]
  - COMPLEX PARTIAL SEIZURES [None]
  - CONFUSIONAL STATE [None]
  - GRAND MAL CONVULSION [None]
  - LOSS OF CONSCIOUSNESS [None]
  - SINUS BRADYCARDIA [None]
